FAERS Safety Report 5511016-6 (Version None)
Quarter: 2007Q4

REPORT INFORMATION
  Report Type: 
  Country: None (occurrence: None)
  Receive Date: 20071109
  Receipt Date: 20070928
  Transmission Date: 20080405
  Serious: Yes (Hospitalization, Congenital Anomaly, Other)
  Sender: FDA-Public Use
  Company Number: US-SHR-US-2007-025115

PATIENT
  Age: 1 Day
  Sex: Male
  Weight: 2.422 kg

DRUGS (3)
  1. BETAFERON [Suspect]
     Indication: MULTIPLE SCLEROSIS
     Dosage: 1 ML, EVERY 2D
     Dates: start: 20060415, end: 20061024
  2. LOVENOX [Concomitant]
     Indication: THROMBOSIS PROPHYLAXIS
     Dosage: 40 MG, 1X/DAY
     Dates: start: 20061215, end: 20070702
  3. PROGESTERONE [Concomitant]
     Indication: PROPHYLAXIS
     Dosage: 250 MG, 1X/WEEK
     Dates: start: 20070213, end: 20070526

REACTIONS (2)
  - PREMATURE BABY [None]
  - TRISOMY 21 [None]
